FAERS Safety Report 21732178 (Version 1)
Quarter: 2022Q4

REPORT INFORMATION
  Report Type: Spontaneous
  Country: AU (occurrence: AU)
  Receive Date: 20221215
  Receipt Date: 20221215
  Transmission Date: 20230112
  Serious: Yes (Other)
  Sender: FDA-Public Use
  Company Number: AU-ADVANZ PHARMA-202212008601

PATIENT

DRUGS (5)
  1. ZONISAMIDE [Suspect]
     Active Substance: ZONISAMIDE
     Dosage: UNK
  2. VALPROIC ACID [Suspect]
     Active Substance: VALPROIC ACID
     Dosage: UNK
  3. MIRTAZAPINE [Suspect]
     Active Substance: MIRTAZAPINE
     Dosage: UNK
  4. LACOSAMIDE [Suspect]
     Active Substance: LACOSAMIDE
     Dosage: UNK
  5. PREGABALIN [Suspect]
     Active Substance: PREGABALIN
     Dosage: UNK

REACTIONS (5)
  - Seizure [Unknown]
  - Automatism [Unknown]
  - Behaviour disorder [Unknown]
  - Off label use [Unknown]
  - Drug ineffective [Unknown]
